FAERS Safety Report 8578579 (Version 2)
Quarter: 2014Q1

REPORT INFORMATION
  Report Type: Spontaneous
  Country: US (occurrence: None)
  Receive Date: 20120323
  Receipt Date: 20140306
  Transmission Date: 20141002
  Serious: Yes (Other)
  Sender: FDA-Public Use
  Company Number: 163-21880-11040624

PATIENT
  Sex: Female

DRUGS (4)
  1. REVLIMID [Suspect]
     Indication: PLASMA CELL MYELOMA
     Dosage: 25 MG, 1 IN 1 D, PO
     Route: 048
     Dates: start: 20100121
  2. DESONIDE [Concomitant]
  3. GLUCOSAMINE [Concomitant]
  4. DEXAMETHASONE [Concomitant]

REACTIONS (3)
  - Diarrhoea [None]
  - Contusion [None]
  - Nasopharyngitis [None]
